FAERS Safety Report 16219835 (Version 4)
Quarter: 2019Q3

REPORT INFORMATION
  Report Type: Spontaneous
  Country: PL (occurrence: PL)
  Receive Date: 20190420
  Receipt Date: 20190927
  Transmission Date: 20191004
  Serious: Yes (Death, Hospitalization, Disabling, Other)
  Sender: FDA-Public Use
  Company Number: PL-AUROBINDO-AUR-APL-2019-020993

PATIENT
  Age: 64 Year
  Sex: Female

DRUGS (21)
  1. OLANZAPINE. [Interacting]
     Active Substance: OLANZAPINE
     Indication: NAUSEA
  2. OLANZAPINE. [Interacting]
     Active Substance: OLANZAPINE
     Indication: PSYCHOTIC DISORDER
  3. AMITRIPTYLINE [Interacting]
     Active Substance: AMITRIPTYLINE
     Indication: PSYCHOTIC DISORDER
  4. POTASSIUM [Suspect]
     Active Substance: POTASSIUM
     Indication: PRODUCT USED FOR UNKNOWN INDICATION
     Dosage: UNK
     Route: 065
  5. FLUCONAZOLE. [Interacting]
     Active Substance: FLUCONAZOLE
     Indication: ORAL FUNGAL INFECTION
  6. FLUCONAZOLE. [Interacting]
     Active Substance: FLUCONAZOLE
     Indication: FUNGAL INFECTION
  7. FUROSEMIDE. [Suspect]
     Active Substance: FUROSEMIDE
     Indication: PROPHYLAXIS
     Dosage: 60 MILLIGRAM, ONCE A DAY
     Route: 065
  8. POTASSIUM [Suspect]
     Active Substance: POTASSIUM
     Indication: CERVIX CARCINOMA
  9. OLANZAPINE. [Interacting]
     Active Substance: OLANZAPINE
     Indication: INSOMNIA
     Dosage: 10 MILLIGRAM, ONCE A DAY
     Route: 065
  10. FLUCONAZOLE. [Suspect]
     Active Substance: FLUCONAZOLE
     Indication: ORAL DISORDER
     Dosage: 200 MILLIGRAM, ONCE A DAY
     Route: 048
  11. OLANZAPINE. [Interacting]
     Active Substance: OLANZAPINE
     Indication: INITIAL INSOMNIA
  12. AMITRIPTYLINE [Interacting]
     Active Substance: AMITRIPTYLINE
     Indication: ANALGESIC THERAPY
     Dosage: 150 MILLIGRAM, DAILY (50 MG, TID)
     Route: 065
  13. AMITRIPTYLINE [Interacting]
     Active Substance: AMITRIPTYLINE
     Indication: NEURALGIA
  14. FUROSEMIDE. [Suspect]
     Active Substance: FUROSEMIDE
     Indication: CERVIX CARCINOMA
  15. LOW MOLECULAR WEIGHT HEPARIN [Suspect]
     Active Substance: UNSPECIFIED INGREDIENT
     Indication: CERVIX CARCINOMA
  16. AMITRIPTYLINE [Interacting]
     Active Substance: AMITRIPTYLINE
     Indication: CERVIX CARCINOMA
  17. MORPHINE [Interacting]
     Active Substance: MORPHINE
     Indication: ANALGESIC THERAPY
     Dosage: 240 MILLIGRAM, ONCE A DAY
     Route: 048
  18. MORPHINE [Interacting]
     Active Substance: MORPHINE
     Indication: CERVIX CARCINOMA
  19. MORPHINE [Interacting]
     Active Substance: MORPHINE
     Indication: NEURALGIA
  20. LOW MOLECULAR WEIGHT HEPARIN [Suspect]
     Active Substance: UNSPECIFIED INGREDIENT
     Indication: PROPHYLAXIS
     Dosage: UNK, A PREVENTIVE DOSE
     Route: 065
  21. MORPHINE [Interacting]
     Active Substance: MORPHINE
     Indication: PAIN

REACTIONS (17)
  - Drug interaction [Fatal]
  - Peripheral swelling [Fatal]
  - Haemoptysis [Fatal]
  - Cardiac arrest [Fatal]
  - Dyspnoea [Fatal]
  - Oedema peripheral [Fatal]
  - Pulmonary embolism [Fatal]
  - Cardio-respiratory arrest [Fatal]
  - Somnolence [Fatal]
  - Cough [Fatal]
  - Cyanosis [Fatal]
  - Swelling [Fatal]
  - Venous thrombosis [Fatal]
  - Chest pain [Fatal]
  - Nausea [Recovered/Resolved]
  - Confusional state [Fatal]
  - Insomnia [Recovering/Resolving]
